FAERS Safety Report 5010221-5 (Version None)
Quarter: 2006Q2

REPORT INFORMATION
  Report Type: 
  Country: None (occurrence: None)
  Receive Date: 20060404
  Receipt Date: 20051129
  Transmission Date: 20061013
  Serious: No
  Sender: FDA-Public Use
  Company Number: US200511003247

PATIENT
  Age: 52 Year
  Sex: Male

DRUGS (10)
  1. CYMBALTA [Suspect]
     Indication: DEPRESSION
     Dosage: 90 MG, EACH MORNING
     Dates: start: 20050920, end: 20051122
  2. XANAX /USA/(ALPRAZOLAM) [Concomitant]
  3. OXYCONTIN [Concomitant]
  4. METHADONE HCL [Concomitant]
  5. DILAUDID /CAN/(HYDROMORPHONE HYDROCHLORIDE) [Concomitant]
  6. LIPITOR [Concomitant]
  7. TRICOR [Concomitant]
  8. FOLIC ACID [Concomitant]
  9. CALAN [Concomitant]
  10. VASOTEC [Concomitant]

REACTIONS (7)
  - ABNORMAL DREAMS [None]
  - DIZZINESS [None]
  - FEAR [None]
  - HEADACHE [None]
  - NAUSEA [None]
  - NIGHT SWEATS [None]
  - NIGHTMARE [None]
